FAERS Safety Report 20942694 (Version 1)
Quarter: 2022Q2

REPORT INFORMATION
  Report Type: Spontaneous
  Country: US (occurrence: US)
  Receive Date: 20220610
  Receipt Date: 20220610
  Transmission Date: 20220721
  Serious: Yes (Other)
  Sender: FDA-Public Use
  Company Number: US-CADILA HEALTHCARE LIMITED-US-ZYDUS-078851

PATIENT

DRUGS (7)
  1. DOXORUBICIN [Suspect]
     Active Substance: DOXORUBICIN
     Indication: Clear cell sarcoma of the kidney
     Dosage: UNK
     Route: 065
  2. IFOSFAMIDE [Suspect]
     Active Substance: IFOSFAMIDE
     Indication: Clear cell sarcoma of the kidney
     Dosage: 6 GRAM PER SQUARE METRE
     Route: 065
  3. CARBOPLATIN [Suspect]
     Active Substance: CARBOPLATIN
     Indication: Clear cell sarcoma of the kidney
     Dosage: 500 MILLIGRAM/SQ. METER
     Route: 065
  4. ETOPOSIDE [Concomitant]
     Active Substance: ETOPOSIDE
     Indication: Clear cell sarcoma of the kidney
     Dosage: 300 MILLIGRAM/SQ. METER
     Route: 065
  5. VINCRISTINE [Concomitant]
     Active Substance: VINCRISTINE
     Indication: Clear cell sarcoma of the kidney
     Dosage: 1.5 MILLIGRAM/SQ. METER
     Route: 065
  6. IRINOTECAN [Concomitant]
     Active Substance: IRINOTECAN
     Indication: Clear cell sarcoma of the kidney
     Dosage: 50 MILLIGRAM/SQ. METER
     Route: 065
  7. TEMOZOLOMIDE [Concomitant]
     Active Substance: TEMOZOLOMIDE
     Indication: Clear cell sarcoma of the kidney
     Dosage: 100 MILLIGRAM/SQ. METER PER CYCLE FOR 8 CYCLE
     Route: 065

REACTIONS (1)
  - Carnitine deficiency [Recovered/Resolved]
